FAERS Safety Report 16373583 (Version 1)
Quarter: 2019Q2

REPORT INFORMATION
  Report Type: Spontaneous
  Country: US (occurrence: US)
  Receive Date: 20190530
  Receipt Date: 20190530
  Transmission Date: 20190711
  Serious: No
  Sender: FDA-Public Use
  Company Number: US-ASTRAZENECA-2019SE71616

PATIENT
  Age: 67 Year
  Sex: Male

DRUGS (1)
  1. FASENRA [Suspect]
     Active Substance: BENRALIZUMAB
     Route: 058
     Dates: start: 20190319

REACTIONS (5)
  - Neck pain [Unknown]
  - Eosinophil count increased [Unknown]
  - Product dose omission [Unknown]
  - Transient global amnesia [Unknown]
  - Headache [Unknown]

NARRATIVE: CASE EVENT DATE: 201903
